FAERS Safety Report 17989127 (Version 1)
Quarter: 2020Q3

REPORT INFORMATION
  Report Type: Spontaneous
  Country: JP (occurrence: JP)
  Receive Date: 20200707
  Receipt Date: 20200707
  Transmission Date: 20201103
  Serious: Yes (Hospitalization, Other)
  Sender: FDA-Public Use
  Company Number: JP-PFIZER INC-2020256691

PATIENT
  Age: 80 Year
  Sex: Male

DRUGS (2)
  1. INLYTA [Suspect]
     Active Substance: AXITINIB
  2. OPDIVO [Suspect]
     Active Substance: NIVOLUMAB
     Dosage: UNK

REACTIONS (6)
  - Gastrointestinal perforation [Unknown]
  - Haematochezia [Unknown]
  - Gastrointestinal oedema [Unknown]
  - Enteritis infectious [Unknown]
  - Enterocolitis [Unknown]
  - Gastrointestinal inflammation [Unknown]
